FAERS Safety Report 25794992 (Version 1)
Quarter: 2025Q3

REPORT INFORMATION
  Report Type: Spontaneous
  Country: RU (occurrence: RU)
  Receive Date: 20250912
  Receipt Date: 20250912
  Transmission Date: 20251020
  Serious: Yes (Death)
  Sender: ROCHE
  Company Number: RU-ROCHE-10000387044

PATIENT
  Age: 34 Year

DRUGS (2)
  1. ALECTINIB [Suspect]
     Active Substance: ALECTINIB
     Indication: Non-small cell lung cancer
     Route: 065
  2. LORLATINIB [Concomitant]
     Active Substance: LORLATINIB

REACTIONS (1)
  - Death [Fatal]
